FAERS Safety Report 9697280 (Version 1)
Quarter: 2013Q4

REPORT INFORMATION
  Report Type: Spontaneous
  Country: US (occurrence: None)
  Receive Date: 20131119
  Receipt Date: 20131119
  Transmission Date: 20140711
  Serious: Yes (Death, Hospitalization, Disabling, Other)
  Sender: FDA-Public Use
  Company Number: None

PATIENT
  Age: 35 Year
  Sex: Female

DRUGS (1)
  1. ALBUTEROL SULFATE [Suspect]
     Indication: ASTHMA
     Dates: start: 20131007, end: 20131018

REACTIONS (10)
  - Drug ineffective [None]
  - Dyspnoea [None]
  - Cough [None]
  - Condition aggravated [None]
  - Maternal drugs affecting foetus [None]
  - Vaginal haemorrhage [None]
  - Death neonatal [None]
  - Premature labour [None]
  - Product quality issue [None]
  - Premature baby [None]
